FAERS Safety Report 5485635-X (Version None)
Quarter: 2007Q4

REPORT INFORMATION
  Report Type: 
  Country: None (occurrence: None)
  Receive Date: 20071015
  Receipt Date: 20071004
  Transmission Date: 20080405
  Serious: Yes (Death, Other)
  Sender: FDA-Public Use
  Company Number: DE-ELI_LILLY_AND_COMPANY-DE200710001336

PATIENT
  Age: 76 Year
  Sex: Female

DRUGS (1)
  1. XIGRIS [Suspect]
     Indication: SEPTIC SHOCK
     Dosage: 24 MG/KG/HOUR
     Route: 065
     Dates: start: 20070924

REACTIONS (3)
  - CARDIAC FAILURE [None]
  - CEREBRAL HAEMORRHAGE [None]
  - MYDRIASIS [None]
